FAERS Safety Report 10494971 (Version 1)
Quarter: 2014Q3

REPORT INFORMATION
  Report Type: Spontaneous
  Country: US (occurrence: None)
  Receive Date: 20140815
  Receipt Date: 20140815
  Transmission Date: 20150326
  Serious: Yes (Life-Threatening, Other)
  Sender: FDA-Public Use
  Company Number: ADR-2014-00994

PATIENT
  Sex: Male

DRUGS (1)
  1. BACLOFEN. [Suspect]
     Active Substance: BACLOFEN
     Indication: MUSCLE SPASTICITY
     Dosage: SEE B5

REACTIONS (9)
  - Cerebrospinal fluid leakage [None]
  - Overdose [None]
  - Pathogen resistance [None]
  - Staphylococcal infection [None]
  - Somnolence [None]
  - Unevaluable event [None]
  - Pseudomonas infection [None]
  - Drug withdrawal syndrome [None]
  - Multi-organ failure [None]
